FAERS Safety Report 5926489-4 (Version None)
Quarter: 2008Q4

REPORT INFORMATION
  Report Type: 
  Country: None (occurrence: None)
  Receive Date: 20081022
  Receipt Date: 20081016
  Transmission Date: 20090506
  Serious: Yes (Other)
  Sender: FDA-Public Use
  Company Number: PHEH2008US09304

PATIENT
  Sex: Male

DRUGS (2)
  1. DIOVAN [Suspect]
  2. CARDIOVASCULAR SYSTEM DRUGS [Suspect]

REACTIONS (2)
  - MYOCARDIAL INFARCTION [None]
  - TREATMENT NONCOMPLIANCE [None]
